FAERS Safety Report 17313927 (Version 1)
Quarter: 2020Q1

REPORT INFORMATION
  Report Type: Report from Study
  Country: CN (occurrence: CN)
  Receive Date: 20200124
  Receipt Date: 20200124
  Transmission Date: 20200409
  Serious: Yes (Other)
  Sender: FDA-Public Use
  Company Number: CN-ROCHE-2525302

PATIENT

DRUGS (2)
  1. RIBAVIRIN. [Suspect]
     Active Substance: RIBAVIRIN
     Indication: SEVERE FEVER WITH THROMBOCYTOPENIA SYNDROME
     Dosage: 0.4 - 0.6 G/D
     Route: 065
  2. GANCICLOVIR. [Suspect]
     Active Substance: GANCICLOVIR
     Indication: SEVERE FEVER WITH THROMBOCYTOPENIA SYNDROME
     Route: 042

REACTIONS (6)
  - Alanine aminotransferase increased [Unknown]
  - Off label use [Unknown]
  - Myocardial necrosis marker increased [Unknown]
  - White blood cell count decreased [Unknown]
  - Intentional product use issue [Unknown]
  - Platelet count decreased [Unknown]
